FAERS Safety Report 9168996 (Version 1)
Quarter: 2013Q1

REPORT INFORMATION
  Report Type: Report from Study
  Country: CA (occurrence: CA)
  Receive Date: 20130318
  Receipt Date: 20130318
  Transmission Date: 20140127
  Serious: Yes (Other)
  Sender: FDA-Public Use
  Company Number: CA-ROCHE-1083701

PATIENT
  Sex: Female

DRUGS (9)
  1. ZELBORAF [Suspect]
     Indication: METASTATIC MALIGNANT MELANOMA
     Route: 048
     Dates: start: 201206, end: 20121119
  2. ZELBORAF [Suspect]
     Route: 048
     Dates: end: 20121030
  3. ZELBORAF [Suspect]
     Dosage: RE STARTED
     Route: 048
     Dates: start: 20130226
  4. IPILIMUMAB [Suspect]
     Indication: METASTATIC MALIGNANT MELANOMA
     Route: 065
     Dates: start: 20121120, end: 20130122
  5. CRESTOR [Concomitant]
     Route: 065
  6. ATIVAN [Concomitant]
     Route: 065
  7. IRBESARTAN [Concomitant]
     Route: 065
  8. HYDROCHLOROTHIAZIDE [Concomitant]
     Route: 065
  9. CODEINE [Concomitant]
     Indication: COUGH
     Route: 065

REACTIONS (4)
  - Drug effect decreased [Unknown]
  - Rash generalised [Recovering/Resolving]
  - Metastases to abdominal wall [Recovered/Resolved]
  - Headache [Not Recovered/Not Resolved]
